FAERS Safety Report 4440701-2 (Version None)
Quarter: 2004Q3

REPORT INFORMATION
  Report Type: 
  Country: None (occurrence: None)
  Receive Date: 20040903
  Receipt Date: 20040825
  Transmission Date: 20050211
  Serious: Yes (Hospitalization)
  Sender: FDA-Public Use
  Company Number: IT-BRISTOL-MYERS SQUIBB COMPANY-12683546

PATIENT
  Age: 55 Year
  Sex: Male

DRUGS (5)
  1. ATAZANAVIR [Suspect]
     Indication: HIV INFECTION
     Route: 048
     Dates: start: 20040525, end: 20040808
  2. NORVIR [Concomitant]
     Indication: HIV INFECTION
     Dates: start: 20040525, end: 20040808
  3. TRIZIVIR [Concomitant]
     Indication: HIV INFECTION
     Dates: start: 20040525
  4. VIREAD [Concomitant]
     Indication: HIV INFECTION
     Dates: start: 20040430
  5. VIDEX [Concomitant]
     Indication: HIV INFECTION
     Dates: start: 20040430

REACTIONS (1)
  - ACUTE MYOCARDIAL INFARCTION [None]
